FAERS Safety Report 13586761 (Version 1)
Quarter: 2017Q2

REPORT INFORMATION
  Report Type: Spontaneous
  Country: JP (occurrence: JP)
  Receive Date: 20170526
  Receipt Date: 20170526
  Transmission Date: 20170830
  Serious: Yes (Other)
  Sender: FDA-Public Use
  Company Number: JP-009507513-1705JPN002224J

PATIENT
  Age: 71 Year
  Sex: Female

DRUGS (2)
  1. GRAZYNA TABLETS 50MG [Suspect]
     Active Substance: GRAZOPREVIR
     Indication: VIRAEMIA
     Dosage: 100 MG, QD
     Route: 048
     Dates: start: 20170412
  2. ERELSA TABLETS 50MG [Suspect]
     Active Substance: ELBASVIR
     Indication: VIRAEMIA
     Dosage: 50 MG, QD
     Route: 048
     Dates: start: 20170412

REACTIONS (1)
  - Dementia [Unknown]

NARRATIVE: CASE EVENT DATE: 201705
